FAERS Safety Report 25669154 (Version 1)
Quarter: 2025Q3

REPORT INFORMATION
  Report Type: Spontaneous
  Country: US (occurrence: US)
  Receive Date: 20250812
  Receipt Date: 20250812
  Transmission Date: 20251020
  Serious: Yes (Other)
  Sender: SANOFI AVENTIS
  Company Number: US-DialogSolutions-SAAVPROD-PI807324-C1

PATIENT
  Age: 80 Year
  Sex: Male

DRUGS (4)
  1. THYROTROPIN ALFA [Suspect]
     Active Substance: THYROTROPIN ALFA
     Indication: Hyperthyroidism
  2. THYROTROPIN ALFA [Suspect]
     Active Substance: THYROTROPIN ALFA
  3. FUROSEMIDE [Concomitant]
     Active Substance: FUROSEMIDE
  4. DRONEDARONE [Concomitant]
     Active Substance: DRONEDARONE

REACTIONS (1)
  - Hypothyroidism [Recovered/Resolved]
